FAERS Safety Report 21697665 (Version 2)
Quarter: 2022Q4

REPORT INFORMATION
  Report Type: Report from Study
  Country: FR (occurrence: FR)
  Receive Date: 20221208
  Receipt Date: 20221223
  Transmission Date: 20230112
  Serious: Yes (Life-Threatening, Other)
  Sender: FDA-Public Use
  Company Number: FR-AMGEN-FRACT2022212108

PATIENT
  Age: 53 Year
  Sex: Male
  Weight: 68 kg

DRUGS (7)
  1. CARFILZOMIB [Suspect]
     Active Substance: CARFILZOMIB
     Indication: Plasma cell myeloma
     Dosage: 38 UNK, PER CHEMO REGIM
     Route: 040
     Dates: start: 20220421
  2. CARFILZOMIB [Suspect]
     Active Substance: CARFILZOMIB
     Dosage: 56 UNK, PER CHEMO REGIM
     Route: 040
  3. CARFILZOMIB [Suspect]
     Active Substance: CARFILZOMIB
     Dosage: 104 MILLIGRAM, PER CHEMO REGIM
     Route: 040
  4. ISATUXIMAB [Suspect]
     Active Substance: ISATUXIMAB
     Indication: Plasma cell myeloma
     Dosage: 720 MILLIGRAM, PER CHEMO REGIM
     Route: 040
     Dates: start: 20220421
  5. LENALIDOMIDE [Suspect]
     Active Substance: LENALIDOMIDE
     Indication: Plasma cell myeloma
     Dosage: 25 MILLIGRAM, PER CHEMO REGIM
     Route: 048
     Dates: start: 20220421
  6. DEXAMETHASONE [Suspect]
     Active Substance: DEXAMETHASONE
     Indication: Plasma cell myeloma
     Dosage: 40 MILLIGRAM, PER CHEMO REGIM
     Route: 048
     Dates: start: 20220421
  7. MELPHALAN [Concomitant]
     Active Substance: MELPHALAN
     Dosage: 375 MILLIGRAM
     Dates: start: 20221121

REACTIONS (2)
  - Colitis [Recovered/Resolved]
  - Pneumonia [Recovered/Resolved]

NARRATIVE: CASE EVENT DATE: 20221202
